FAERS Safety Report 25801863 (Version 1)
Quarter: 2025Q3

REPORT INFORMATION
  Report Type: Spontaneous
  Country: US (occurrence: None)
  Receive Date: 20250912
  Receipt Date: 20250912
  Transmission Date: 20251021
  Serious: Yes (Disabling)
  Sender: FDA-CTU
  Company Number: None

PATIENT
  Age: 60 Year
  Sex: Female
  Weight: 99 kg

DRUGS (1)
  1. LEVOCARNITINE\TIRZEPATIDE [Suspect]
     Active Substance: LEVOCARNITINE\TIRZEPATIDE
     Indication: Weight decreased
     Dosage: OTHER QUANTITY : 12.5 INJECTION(S);?OTHER FREQUENCY : ONCE A WEEK;?
     Route: 058
     Dates: start: 20250902, end: 20250909

REACTIONS (2)
  - Influenza [None]
  - Upper respiratory tract infection [None]

NARRATIVE: CASE EVENT DATE: 20250905
